FAERS Safety Report 8893827 (Version 1)
Quarter: 2012Q4

REPORT INFORMATION
  Report Type: 
  Country: US (occurrence: US)
  Receive Date: 20121108
  Receipt Date: 20121108
  Transmission Date: 20130627
  Serious: No
  Sender: FDA-Public Use
  Company Number: US-PFIZER INC-2012277453

PATIENT
  Age: 62 Year
  Sex: Male
  Weight: 69.84 kg

DRUGS (1)
  1. TIKOSYN [Suspect]
     Indication: VENTRICULAR ARRHYTHMIA
     Dosage: 250 ug, 2x/day
     Route: 048
     Dates: start: 201204

REACTIONS (2)
  - Blood pressure abnormal [Unknown]
  - Off label use [Unknown]
